FAERS Safety Report 8234950-5 (Version None)
Quarter: 2012Q1

REPORT INFORMATION
  Report Type: 
  Country: None (occurrence: None)
  Receive Date: 20120307
  Receipt Date: 20110225
  Transmission Date: 20120608
  Serious: Yes (Hospitalization)
  Sender: FDA-Public Use
  Company Number: PHHY2011US06948

PATIENT
  Age: 16 Year
  Sex: Female
  Weight: 61 kg

DRUGS (5)
  1. AFINITOR [Suspect]
     Indication: ASTROCYTOMA
     Dosage: 5 MG DAILY, ORAL
     Route: 048
     Dates: start: 20101221
  2. PREDNISONE TAB [Concomitant]
  3. VITAMIN D [Concomitant]
  4. HYDROXYCHLOROQUINE SULFATE [Concomitant]
  5. ACETAMINOPHEN [Concomitant]

REACTIONS (7)
  - DIZZINESS [None]
  - NAUSEA [None]
  - SCREAMING [None]
  - BLOOD TRIGLYCERIDES INCREASED [None]
  - BLOOD CHOLESTEROL INCREASED [None]
  - NON-HIGH-DENSITY LIPOPROTEIN CHOLESTEROL INCREASED [None]
  - HEADACHE [None]
